FAERS Safety Report 5546783-9 (Version None)
Quarter: 2007Q4

REPORT INFORMATION
  Report Type: 
  Country: None (occurrence: None)
  Receive Date: 20071126
  Receipt Date: 20070116
  Transmission Date: 20080405
  Serious: Yes (Hospitalization, Other)
  Sender: FDA-Public Use
  Company Number: 33648

PATIENT
  Age: 51 Year
  Sex: Female

DRUGS (9)
  1. ADRIAMYCIN PFS [Suspect]
     Indication: BREAST CANCER
     Dosage: 118MG
     Dates: start: 20061108, end: 20061122
  2. CYTOXAN [Concomitant]
  3. BEVACIZUMAB [Concomitant]
  4. NEULASTA [Concomitant]
  5. ALLEGRA [Concomitant]
  6. FLONASE [Concomitant]
  7. CALCIUM GLUCONATE [Concomitant]
  8. VITAMIN B COMPLEX CAP [Concomitant]
  9. NEURONTIN [Concomitant]

REACTIONS (3)
  - CELLULITIS [None]
  - INFECTION [None]
  - NEUTROPENIA [None]
